FAERS Safety Report 24619015 (Version 1)
Quarter: 2024Q4

REPORT INFORMATION
  Report Type: Spontaneous
  Country: US (occurrence: US)
  Receive Date: 20241114
  Receipt Date: 20241114
  Transmission Date: 20250115
  Serious: No
  Sender: CURRAX PHARMACEUTICALS
  Company Number: US-CURRAX PHARMACEUTICALS LLC-US-2023CUR003799

PATIENT
  Sex: Female

DRUGS (10)
  1. CONTRAVE [Suspect]
     Active Substance: BUPROPION HYDROCHLORIDE\NALTREXONE HYDROCHLORIDE
     Indication: Weight control
     Dosage: STRENGTH: 8/90 MG, 1 TABLET ONCE A DAY
     Route: 065
     Dates: start: 20230808, end: 2023
  2. CONTRAVE [Suspect]
     Active Substance: BUPROPION HYDROCHLORIDE\NALTREXONE HYDROCHLORIDE
     Dosage: STRENGTH: 8/90 MG, 1 TABLET TWICE A DAY
     Route: 065
     Dates: start: 2023, end: 2023
  3. CONTRAVE [Suspect]
     Active Substance: BUPROPION HYDROCHLORIDE\NALTREXONE HYDROCHLORIDE
     Dosage: STRENGTH: 8/90 MG, 2 TABLET IN THE MORNING- 1 IN EVENING
     Route: 065
     Dates: start: 2023, end: 2023
  4. CONTRAVE [Suspect]
     Active Substance: BUPROPION HYDROCHLORIDE\NALTREXONE HYDROCHLORIDE
     Dosage: STRENGTH: 8/90 MG, 2 TABLET TWICE A DAY
     Route: 065
     Dates: start: 2023, end: 2023
  5. VITAMIN D NOS [Concomitant]
     Active Substance: CHOLECALCIFEROL\ERGOCALCIFEROL
     Indication: Product used for unknown indication
     Dosage: 1-1000
  6. LEXAPRO [Concomitant]
     Active Substance: ESCITALOPRAM OXALATE
     Indication: Anxiety
     Dosage: 5 MG, PER DAY
  7. LIPITOR [Concomitant]
     Active Substance: ATORVASTATIN CALCIUM
     Indication: Blood cholesterol
     Dosage: UNK
  8. VITAMINS [Concomitant]
     Active Substance: VITAMINS
     Indication: Product used for unknown indication
     Dosage: UNK
  9. QUETIAPINE FUMARATE [Concomitant]
     Active Substance: QUETIAPINE FUMARATE
     Indication: Sleep disorder
     Dosage: UNK
  10. PANTOPRAZOLE [Concomitant]
     Active Substance: PANTOPRAZOLE
     Indication: Gastrooesophageal reflux disease
     Dosage: UNK

REACTIONS (5)
  - Vision blurred [Recovered/Resolved]
  - Dizziness [Recovered/Resolved]
  - Nervousness [Unknown]
  - Patient dissatisfaction with treatment [Unknown]
  - Drug titration error [Unknown]

NARRATIVE: CASE EVENT DATE: 20230101
